FAERS Safety Report 9225550 (Version 1)
Quarter: 2013Q2

REPORT INFORMATION
  Report Type: Report from Study
  Country: NL (occurrence: NL)
  Receive Date: 20130411
  Receipt Date: 20130411
  Transmission Date: 20140414
  Serious: Yes (Hospitalization)
  Sender: FDA-Public Use
  Company Number: NL-ROCHE-1212176

PATIENT
  Age: 70 Year
  Sex: Male

DRUGS (5)
  1. CAPECITABINE [Suspect]
     Indication: GASTRIC CANCER
     Route: 048
     Dates: start: 20130307, end: 20130313
  2. EPIRUBICIN [Suspect]
     Indication: GASTRIC CANCER
     Route: 042
     Dates: start: 20130307, end: 20130307
  3. ATORVASTATIN [Concomitant]
     Route: 065
  4. TOLBUTAMIDE [Concomitant]
     Route: 065
  5. NADROPARIN [Concomitant]
     Route: 058
     Dates: start: 20130309

REACTIONS (3)
  - Cerebral ischaemia [Recovered/Resolved]
  - Bronchitis [Recovered/Resolved]
  - Granulocytopenia [Recovered/Resolved with Sequelae]
